FAERS Safety Report 5428100-8 (Version None)
Quarter: 2007Q3

REPORT INFORMATION
  Report Type: 
  Country: None (occurrence: None)
  Receive Date: 20070828
  Receipt Date: 20070806
  Transmission Date: 20080115
  Serious: No
  Sender: FDA-Public Use
  Company Number: US-BOEHRINGER INGELHEIM PHARMACEUTICALS, INC.-2007-BP-18624BP

PATIENT
  Age: 50 Year
  Sex: Female

DRUGS (1)
  1. SPIRIVA [Suspect]
     Route: 055

REACTIONS (4)
  - DYSPNOEA [None]
  - RASH [None]
  - SWOLLEN TONGUE [None]
  - TONGUE BLACK HAIRY [None]
